FAERS Safety Report 7009152-0 (Version None)
Quarter: 2010Q3

REPORT INFORMATION
  Report Type: 
  Country: None (occurrence: None)
  Receive Date: 20100923
  Receipt Date: 20100916
  Transmission Date: 20110219
  Serious: Yes (Other)
  Sender: FDA-Public Use
  Company Number: CH-JNJFOC-20100905594

PATIENT
  Age: 61 Year
  Sex: Male

DRUGS (1)
  1. TAVANIC [Suspect]
     Indication: PROSTATITIS
     Route: 048

REACTIONS (2)
  - ENTEROCOLITIS HAEMORRHAGIC [None]
  - PSEUDOMEMBRANOUS COLITIS [None]
